FAERS Safety Report 5756036-1 (Version None)
Quarter: 2008Q2

REPORT INFORMATION
  Report Type: 
  Country: None (occurrence: None)
  Receive Date: 20080602
  Receipt Date: 20080528
  Transmission Date: 20081010
  Serious: Yes (Hospitalization, Other)
  Sender: FDA-Public Use
  Company Number: PHHY2008JP08062

PATIENT
  Age: 36 Year
  Sex: Male

DRUGS (22)
  1. TEGRETOL [Suspect]
     Indication: BIPOLAR I DISORDER
     Dosage: 300 MG/DAY
     Route: 048
     Dates: start: 20070627, end: 20070710
  2. TEGRETOL [Suspect]
     Dosage: 600 MG/DAY
     Route: 048
     Dates: start: 20070711, end: 20070724
  3. ABILIFY [Concomitant]
     Indication: BIPOLAR I DISORDER
     Dosage: 9 MG
     Route: 048
     Dates: start: 20070711, end: 20070724
  4. DEPAKENE [Concomitant]
     Indication: BIPOLAR I DISORDER
     Dosage: 600 MG
     Route: 048
     Dates: end: 20070731
  5. AMOXAN [Concomitant]
     Indication: BIPOLAR I DISORDER
     Route: 048
  6. LANDSEN [Concomitant]
     Indication: BIPOLAR I DISORDER
     Dosage: 1.5 MG
     Route: 048
  7. HALCION [Concomitant]
     Indication: INSOMNIA
     Dosage: 0.25 MG
     Route: 048
  8. MYSLEE [Concomitant]
     Indication: INSOMNIA
     Dosage: 10 MG
     Route: 048
  9. ROHYPNOL [Concomitant]
     Indication: INSOMNIA
     Dosage: 4 MG
     Route: 048
  10. ZOPICLONE [Concomitant]
     Indication: INSOMNIA
     Dosage: 7.5 MG
     Route: 048
     Dates: end: 20070723
  11. AMOBAN [Concomitant]
     Indication: INSOMNIA
     Dosage: UNK
     Dates: start: 20070724, end: 20070731
  12. SEROQUEL [Concomitant]
     Indication: BIPOLAR I DISORDER
     Dosage: 200 MG
     Route: 048
  13. TRICOR [Concomitant]
     Indication: HYPERLIPIDAEMIA
     Dosage: 67 MG
     Route: 048
     Dates: start: 20070717, end: 20070724
  14. PREDONINE [Concomitant]
     Dosage: 30 MG/DAY
  15. PREDONINE [Concomitant]
     Dosage: 60 MG/DAY
     Dates: start: 20070725
  16. PREDONINE [Concomitant]
     Dosage: 50 MG/DAY
     Dates: start: 20070808
  17. PREDONINE [Concomitant]
     Dosage: 40 MG/DAT
     Dates: start: 20070815
  18. PREDONINE [Concomitant]
     Dosage: 30 MG/DAY
     Dates: start: 20070821
  19. PREDONINE [Concomitant]
     Dosage: 20 MG/DAY
     Dates: start: 20070829
  20. PREDONINE [Concomitant]
     Dosage: 15 MG/DAY
     Dates: start: 20070905
  21. PREDONINE [Concomitant]
     Dosage: 10 MG/DAY
     Dates: start: 20070908
  22. PREDONINE [Concomitant]
     Dosage: 5 MG/DAY
     Dates: start: 20070910

REACTIONS (15)
  - ALANINE AMINOTRANSFERASE INCREASED [None]
  - ASPARTATE AMINOTRANSFERASE INCREASED [None]
  - BLOOD LACTATE DEHYDROGENASE INCREASED [None]
  - DRUG RASH WITH EOSINOPHILIA AND SYSTEMIC SYMPTOMS [None]
  - GAMMA-GLUTAMYLTRANSFERASE INCREASED [None]
  - GENERALISED ERYTHEMA [None]
  - HEPATIC FUNCTION ABNORMAL [None]
  - HUMAN HERPES VIRUS 6 SEROLOGY POSITIVE [None]
  - LYMPHADENOPATHY [None]
  - LYMPHOCYTE COUNT INCREASED [None]
  - LYMPHOCYTE MORPHOLOGY ABNORMAL [None]
  - LYMPHOCYTE STIMULATION TEST POSITIVE [None]
  - PYREXIA [None]
  - RED BLOOD CELL COUNT INCREASED [None]
  - WHITE BLOOD CELL COUNT INCREASED [None]
